FAERS Safety Report 22518537 (Version 2)
Quarter: 2023Q2

REPORT INFORMATION
  Report Type: Spontaneous
  Country: US (occurrence: US)
  Receive Date: 20230605
  Receipt Date: 20230606
  Transmission Date: 20230722
  Serious: No
  Sender: FDA-Public Use
  Company Number: US-AMGEN-USASP2023095170

PATIENT
  Weight: 83.9 kg

DRUGS (1)
  1. REPATHA [Suspect]
     Active Substance: EVOLOCUMAB
     Indication: Blood cholesterol increased
     Dosage: UNK
     Route: 065

REACTIONS (5)
  - Hepatic enzyme increased [Unknown]
  - Gastrooesophageal reflux disease [Unknown]
  - Hepatomegaly [Unknown]
  - Non-alcoholic fatty liver [Unknown]
  - Overweight [Unknown]

NARRATIVE: CASE EVENT DATE: 20230101
